FAERS Safety Report 7867888-3 (Version None)
Quarter: 2011Q4

REPORT INFORMATION
  Report Type: 
  Country: None (occurrence: None)
  Receive Date: 20111028
  Receipt Date: 20111018
  Transmission Date: 20120403
  Serious: Yes (Hospitalization)
  Sender: FDA-Public Use
  Company Number: CH-CELGENEUS-151-21880-11082450

PATIENT
  Age: 78 Year
  Sex: Female

DRUGS (12)
  1. ENALAPRIL MALEATE [Concomitant]
     Dosage: 10 MILLIGRAM
     Route: 048
     Dates: start: 20110901
  2. MACVU MAV [Concomitant]
     Dosage: 10 MILLIGRAM
     Route: 048
     Dates: start: 20110901
  3. REVLIMID [Suspect]
     Indication: B-CELL LYMPHOMA
     Dosage: 15 MILLIGRAM
     Route: 048
     Dates: start: 20110816, end: 20110820
  4. RITUXIMAB [Suspect]
     Indication: B-CELL LYMPHOMA
     Dosage: 750 MILLIGRAM
     Route: 041
     Dates: start: 20110816, end: 20110816
  5. ATORVASTATIN CALCIUM [Concomitant]
     Dosage: 40 MILLIGRAM
     Route: 048
  6. TORSEMIDE [Concomitant]
     Dosage: 5 MILLIGRAM
     Route: 048
  7. DIGOXIN [Concomitant]
     Dosage: 25 MILLIGRAM
     Route: 048
  8. ASPIRIN [Concomitant]
     Dosage: 100 MILLIGRAM
     Route: 048
     Dates: end: 20110820
  9. TORSEMIDE [Concomitant]
     Dosage: 10 MILLIGRAM
     Route: 048
  10. METOPROLOL SUCCINATE [Concomitant]
     Dosage: 200 MILLIGRAM
     Route: 048
     Dates: start: 20110901
  11. BENDAMUSTINE [Suspect]
     Indication: B-CELL LYMPHOMA
     Dosage: 140 MILLIGRAM
     Route: 041
     Dates: start: 20110816, end: 20110817
  12. ATENOLOL [Concomitant]
     Dosage: 100 MILLIGRAM
     Route: 048

REACTIONS (3)
  - CHEST PAIN [None]
  - TROPONIN INCREASED [None]
  - CARDIAC DISORDER [None]
